FAERS Safety Report 18179742 (Version 1)
Quarter: 2020Q3

REPORT INFORMATION
  Report Type: Spontaneous
  Country: US (occurrence: US)
  Receive Date: 20200821
  Receipt Date: 20200821
  Transmission Date: 20201103
  Serious: Yes (Other)
  Sender: FDA-Public Use
  Company Number: US-PFIZER INC-2020322104

PATIENT
  Age: 22 Year
  Sex: Male

DRUGS (7)
  1. LACOSAMIDE. [Concomitant]
     Active Substance: LACOSAMIDE
     Indication: TEMPORAL LOBE EPILEPSY
     Dosage: 200 MG, 2X/DAY
  2. QUETIAPINE XR [Concomitant]
     Active Substance: QUETIAPINE
     Dosage: 800 MG, 1X/DAY AT BED TIME
  3. LEVETIRACETAM. [Concomitant]
     Active Substance: LEVETIRACETAM
     Indication: TEMPORAL LOBE EPILEPSY
     Dosage: 1000 MG, 2X/DAY, XR
  4. OXCARBAZEPINE. [Interacting]
     Active Substance: OXCARBAZEPINE
     Indication: TEMPORAL LOBE EPILEPSY
     Dosage: 1200 MG, 2X/DAY
  5. QUETIAPINE XR [Concomitant]
     Active Substance: QUETIAPINE
     Indication: PSYCHOTIC DISORDER
     Dosage: 600 MG, 1X/DAY AT BED TIME
  6. DIAZEPAM. [Suspect]
     Active Substance: DIAZEPAM
     Indication: TEMPORAL LOBE EPILEPSY
     Dosage: 15 MG, 1X/DAY AT BEDTIME
  7. DIAZEPAM. [Interacting]
     Active Substance: DIAZEPAM
     Indication: PSYCHOTIC DISORDER

REACTIONS (3)
  - Antipsychotic drug level decreased [Recovered/Resolved]
  - Drug interaction [Recovered/Resolved]
  - Drug ineffective [Recovered/Resolved]
